FAERS Safety Report 9863682 (Version 1)
Quarter: 2014Q1

REPORT INFORMATION
  Report Type: Spontaneous
  Country: IT (occurrence: IT)
  Receive Date: 20140203
  Receipt Date: 20140203
  Transmission Date: 20141002
  Serious: Yes (Life-Threatening, Hospitalization)
  Sender: FDA-Public Use
  Company Number: IT-BAYER-2014-015774

PATIENT
  Age: 59 Year
  Sex: Male

DRUGS (3)
  1. SORAFENIB (RAF KINASE INHIBITOR) [Suspect]
     Indication: HEPATIC CANCER METASTATIC
     Dosage: UNK
     Route: 048
     Dates: start: 2011, end: 2011
  2. SORAFENIB (RAF KINASE INHIBITOR) [Suspect]
     Indication: METASTASES TO SPINE
  3. CYCLOSPORINE [Concomitant]

REACTIONS (5)
  - Nephrotic syndrome [Recovered/Resolved]
  - Acute pulmonary oedema [None]
  - Oedema peripheral [Recovered/Resolved]
  - Proteinuria [Recovered/Resolved]
  - Hypoalbuminaemia [Recovered/Resolved]
